FAERS Safety Report 8279500-2 (Version None)
Quarter: 2012Q2

REPORT INFORMATION
  Report Type: 
  Country: None (occurrence: None)
  Receive Date: 20120412
  Receipt Date: 20111219
  Transmission Date: 20120825
  Serious: No
  Sender: FDA-Public Use
  Company Number: US-ASTRAZENECA-2011SE27283

PATIENT
  Age: 52 Year
  Sex: Female

DRUGS (5)
  1. NEXIUM [Suspect]
     Route: 048
  2. NEXIUM [Suspect]
     Route: 048
  3. SEROQUEL [Suspect]
     Indication: DEPRESSION
     Route: 048
  4. SEROQUEL [Suspect]
     Indication: HALLUCINATION, VISUAL
     Route: 048
  5. SEROQUEL [Suspect]
     Indication: HALLUCINATION, AUDITORY
     Route: 048

REACTIONS (6)
  - GASTROOESOPHAGEAL REFLUX DISEASE [None]
  - BRONCHITIS [None]
  - MALAISE [None]
  - DRUG DOSE OMISSION [None]
  - DISCOMFORT [None]
  - MEMORY IMPAIRMENT [None]
